FAERS Safety Report 17419480 (Version 1)
Quarter: 2020Q1

REPORT INFORMATION
  Report Type: Report from Study
  Country: US (occurrence: US)
  Receive Date: 20200214
  Receipt Date: 20200214
  Transmission Date: 20200409
  Serious: No
  Sender: FDA-Public Use
  Company Number: NVSC2020US040249

PATIENT
  Sex: Female
  Weight: 46.71 kg

DRUGS (2)
  1. TREPROSTINIL. [Suspect]
     Active Substance: TREPROSTINIL
     Indication: PULMONARY ARTERIAL HYPERTENSION
     Dosage: 13 NG/KG/MIN, CONT
     Route: 042
     Dates: start: 20191106
  2. TREPROSTINIL. [Suspect]
     Active Substance: TREPROSTINIL
     Dosage: 12 NG/KG/MIN, CONT
     Route: 042

REACTIONS (5)
  - Dizziness [Unknown]
  - Drug intolerance [Recovering/Resolving]
  - Chest discomfort [Unknown]
  - Dyspnoea exertional [Unknown]
  - Headache [Unknown]
